FAERS Safety Report 15316849 (Version 4)
Quarter: 2020Q1

REPORT INFORMATION
  Report Type: Report from Study
  Country: CA (occurrence: CA)
  Receive Date: 20180824
  Receipt Date: 20200206
  Transmission Date: 20200409
  Serious: Yes (Other)
  Sender: FDA-Public Use
  Company Number: PHHY2018CA031959

PATIENT
  Age: 21 Year
  Sex: Female

DRUGS (5)
  1. IMODIUM [Concomitant]
     Active Substance: LOPERAMIDE HYDROCHLORIDE
     Indication: CARCINOID TUMOUR
     Dosage: 100 UG, TID
     Route: 058
     Dates: start: 20171003
  2. SANDOSTATIN LAR DEPOT [Suspect]
     Active Substance: OCTREOTIDE ACETATE
     Dosage: 30 MG, EVERY 2 WEEKS
     Route: 030
     Dates: start: 20190124
  3. SANDOSTATIN LAR DEPOT [Suspect]
     Active Substance: OCTREOTIDE ACETATE
     Dosage: UNK
     Route: 065
     Dates: start: 20190401
  4. SANDOSTATIN LAR DEPOT [Suspect]
     Active Substance: OCTREOTIDE ACETATE
     Indication: CARCINOID TUMOUR
     Dosage: 30 MG (Q 10 DAYS)
     Route: 030
     Dates: start: 20171115
  5. OCTREOTIDE. [Suspect]
     Active Substance: OCTREOTIDE
     Indication: CARCINOID TUMOUR
     Dosage: 100 UG, TID
     Route: 058
     Dates: start: 20171003

REACTIONS (6)
  - Chest pain [Unknown]
  - Adrenal neoplasm [Unknown]
  - Malaise [Unknown]
  - Diarrhoea [Unknown]
  - Heart rate increased [Unknown]
  - Inappropriate schedule of product administration [Unknown]

NARRATIVE: CASE EVENT DATE: 20180222
